FAERS Safety Report 6959988-7 (Version None)
Quarter: 2010Q3

REPORT INFORMATION
  Report Type: 
  Country: None (occurrence: None)
  Receive Date: 20100901
  Receipt Date: 20100817
  Transmission Date: 20110219
  Serious: Yes (Other)
  Sender: FDA-Public Use
  Company Number: US-BAYER-201028700NA

PATIENT
  Age: 30 Year
  Sex: Female
  Weight: 107 kg

DRUGS (4)
  1. YAZ [Suspect]
     Indication: PREMENSTRUAL SYNDROME
     Route: 048
     Dates: start: 20090101, end: 20090101
  2. YASMIN [Suspect]
     Indication: PREMENSTRUAL SYNDROME
     Dates: start: 20090101, end: 20090101
  3. IBUPROFEN [Concomitant]
  4. METFORMIN [Concomitant]

REACTIONS (2)
  - ABDOMINAL PAIN [None]
  - GALLBLADDER DISORDER [None]
